FAERS Safety Report 25583335 (Version 1)
Quarter: 2025Q3

REPORT INFORMATION
  Report Type: Spontaneous
  Country: EU (occurrence: EU)
  Receive Date: 20250721
  Receipt Date: 20250721
  Transmission Date: 20251021
  Serious: Yes (Other)
  Sender: CHEPLAPHARM
  Company Number: None

PATIENT
  Age: 51 Year
  Sex: Male

DRUGS (5)
  1. QUETIAPINE [Suspect]
     Active Substance: QUETIAPINE
     Indication: Depression
     Dosage: EXTENDED RELEASE TABLET?DAILY DOSE: 1 DOSAGE FORM
     Route: 048
  2. PAROXETINE HYDROCHLORIDE [Suspect]
     Active Substance: PAROXETINE HYDROCHLORIDE
     Indication: Depression
     Dosage: DAILY DOSE: 1 DOSAGE FORM
     Route: 048
  3. CYAMEMAZINE [Suspect]
     Active Substance: CYAMEMAZINE
     Indication: Depression
     Dosage: SCORED FILM-COATED TABLET?DAILY DOSE: 1 DOSAGE FORM
     Route: 048
  4. LORMETAZEPAM [Suspect]
     Active Substance: LORMETAZEPAM
     Indication: Depression
     Dosage: DAILY DOSE: 1 DOSAGE FORM
     Route: 048
  5. ASPIRIN [Suspect]
     Active Substance: ASPIRIN
     Indication: Cardiovascular event prophylaxis
     Dosage: DAILY DOSE: 75 MILLIGRAM
     Route: 048

REACTIONS (2)
  - Ventricular dysfunction [Not Recovered/Not Resolved]
  - Aortic aneurysm [Unknown]

NARRATIVE: CASE EVENT DATE: 20250201
